FAERS Safety Report 6869171-1 (Version None)
Quarter: 2010Q3

REPORT INFORMATION
  Report Type: 
  Country: None (occurrence: None)
  Receive Date: 20100722
  Receipt Date: 20080702
  Transmission Date: 20110219
  Serious: No
  Sender: FDA-Public Use
  Company Number: US-PFIZER INC-2008056489

PATIENT
  Sex: Male
  Weight: 79.38 kg

DRUGS (2)
  1. CHANTIX [Suspect]
     Indication: SMOKING CESSATION THERAPY
     Route: 048
     Dates: start: 20080601, end: 20080701
  2. EFFEXOR [Concomitant]
     Indication: DEPRESSION

REACTIONS (2)
  - CONFUSIONAL STATE [None]
  - NIGHTMARE [None]
